FAERS Safety Report 6135977-X (Version None)
Quarter: 2009Q1

REPORT INFORMATION
  Report Type: 
  Country: None (occurrence: None)
  Receive Date: 20090329
  Receipt Date: 20080828
  Transmission Date: 20090719
  Serious: No
  Sender: FDA-Public Use
  Company Number: US-BAUSCH-2008BL003748

PATIENT
  Age: 66 Year
  Sex: Female

DRUGS (5)
  1. LOTEMAX [Suspect]
     Indication: BLEPHAROCHALASIS
     Route: 047
     Dates: start: 20080814, end: 20080828
  2. NASONEX [Suspect]
     Indication: SINUS CONGESTION
     Dosage: DOSE UNIT:UNKNOWN
     Route: 045
     Dates: start: 20080801
  3. NEXIUM [Concomitant]
  4. LIPITOR [Concomitant]
  5. VITAMINS [Concomitant]

REACTIONS (5)
  - CONDITION AGGRAVATED [None]
  - DRUG INTERACTION [None]
  - EYELID OEDEMA [None]
  - LACRIMATION INCREASED [None]
  - SINUS CONGESTION [None]
